FAERS Safety Report 5422119-9 (Version None)
Quarter: 2007Q3

REPORT INFORMATION
  Report Type: 
  Country: None (occurrence: None)
  Receive Date: 20070820
  Receipt Date: 20070801
  Transmission Date: 20080115
  Serious: Yes (Hospitalization)
  Sender: FDA-Public Use
  Company Number: 6029319

PATIENT
  Age: 58 Year
  Sex: Male

DRUGS (2)
  1. WARFARIN SODIUM [Suspect]
     Indication: DRUG USE FOR UNKNOWN INDICATION
     Dosage: 10 MG
  2. HEPARIN [Suspect]
     Indication: DEEP VEIN THROMBOSIS

REACTIONS (7)
  - AXILLARY VEIN THROMBOSIS [None]
  - CARDIAC TAMPONADE [None]
  - HEPARIN-INDUCED THROMBOCYTOPENIA [None]
  - INTERNATIONAL NORMALISED RATIO INCREASED [None]
  - LUNG NEOPLASM MALIGNANT [None]
  - PNEUMONIA [None]
  - SKIN NECROSIS [None]
